FAERS Safety Report 5933330-2 (Version None)
Quarter: 2008Q4

REPORT INFORMATION
  Report Type: 
  Country: None (occurrence: None)
  Receive Date: 20081023
  Receipt Date: 20081009
  Transmission Date: 20090506
  Serious: Yes (Hospitalization)
  Sender: FDA-Public Use
  Company Number: 230522K08USA

PATIENT
  Age: 58 Year
  Sex: Female

DRUGS (4)
  1. REBIF [Suspect]
     Indication: MULTIPLE SCLEROSIS
     Dosage: 44 MCG, 3 IN 1 WEEKS, SUBCUTANEOUS
     Route: 058
     Dates: start: 20080501
  2. BONIVA [Concomitant]
  3. ACIPHEX [Concomitant]
  4. PREMARIN [Concomitant]

REACTIONS (4)
  - BLINDNESS [None]
  - NEUROMYELITIS OPTICA [None]
  - VISION BLURRED [None]
  - VISUAL FIELD DEFECT [None]
